FAERS Safety Report 9070337 (Version 2)
Quarter: 2013Q2

REPORT INFORMATION
  Report Type: Spontaneous
  Country: US (occurrence: US)
  Receive Date: 20130215
  Receipt Date: 20130514
  Transmission Date: 20140414
  Serious: Yes (Hospitalization)
  Sender: FDA-Public Use
  Company Number: US-BAYER-2013-018933

PATIENT
  Age: 31 Year
  Sex: Female
  Weight: 54.42 kg

DRUGS (21)
  1. YAZ [Suspect]
     Indication: ACNE
     Dosage: UNK
     Dates: start: 2009, end: 2010
  2. YAZ [Suspect]
     Indication: PREMENSTRUAL DYSPHORIC DISORDER
  3. YAZ [Suspect]
     Indication: CONTRACEPTION
  4. YASMIN [Suspect]
     Indication: CONTRACEPTION
     Dosage: UNK
     Dates: start: 2009, end: 2010
  5. YASMIN [Suspect]
     Indication: ACNE
  6. YASMIN [Suspect]
     Indication: PREMENSTRUAL DYSPHORIC DISORDER
  7. OCELLA [Suspect]
     Indication: ACNE
     Dosage: UNK
     Dates: start: 2009, end: 2010
  8. OCELLA [Suspect]
     Indication: PREMENSTRUAL DYSPHORIC DISORDER
  9. DICLOFENAC SODIUM [Concomitant]
     Dosage: 75 MG, EXTENDED RELEASE
  10. BUSPIRONE HYDROCHLORIDE [Concomitant]
     Dosage: 30 MG, UNK
  11. SERTRALINE HYDROCHLORIDE [Concomitant]
     Dosage: 50 MG, UNK
  12. BUSPAR [Concomitant]
     Indication: ANXIETY
     Dosage: 30 MG, UNK
  13. BUSPAR [Concomitant]
     Indication: ANXIETY
     Dosage: 45 MG, EVERYDAY
  14. IBUPROFEN [Concomitant]
  15. ZOLOFT [Concomitant]
     Indication: DEPRESSION
     Dosage: 75 MG, EVERYDAY
  16. ZOLOFT [Concomitant]
     Indication: DEPRESSION
     Dosage: 25 MG, UNK
  17. VITAMIN D3 [Concomitant]
     Dosage: 100000 UNIT/GM
  18. VOLTAREN [Concomitant]
     Dosage: 75 MG, UNK
  19. TRAMADOL HYDROCHLORIDE [Concomitant]
     Indication: PAIN IN EXTREMITY
     Dosage: 50 MG, 2 [TIMES] EVERY 4-6 HOURS
  20. NAPROSYN [Concomitant]
     Dosage: 500 MG, UNK
  21. GARDASIL [Concomitant]
     Dosage: UNK
     Dates: start: 20100716

REACTIONS (14)
  - Pulmonary embolism [Recovered/Resolved]
  - Deep vein thrombosis [Not Recovered/Not Resolved]
  - Pain in extremity [Not Recovered/Not Resolved]
  - Pleural effusion [None]
  - Dyspnoea [Recovered/Resolved]
  - Chest pain [Recovered/Resolved]
  - Musculoskeletal chest pain [Recovered/Resolved]
  - Abdominal pain [None]
  - Injury [Recovered/Resolved]
  - Pain [None]
  - General physical health deterioration [Recovered/Resolved]
  - Anxiety [None]
  - Emotional distress [None]
  - Pain [Recovered/Resolved]
